FAERS Safety Report 20066919 (Version 5)
Quarter: 2022Q1

REPORT INFORMATION
  Report Type: Spontaneous
  Country: CA (occurrence: CA)
  Receive Date: 20211115
  Receipt Date: 20220309
  Transmission Date: 20220423
  Serious: Yes (Other)
  Sender: FDA-Public Use
  Company Number: CA-CELLTRION INC.-2021CA010132

PATIENT

DRUGS (16)
  1. INFLECTRA [Suspect]
     Active Substance: INFLIXIMAB-DYYB
     Indication: Crohn^s disease
     Dosage: 500 MG EVERY 8 WEEKS
     Route: 042
     Dates: start: 20210604
  2. INFLECTRA [Suspect]
     Active Substance: INFLIXIMAB-DYYB
     Dosage: 700 MG EVERY 8 WEEKS
     Route: 042
     Dates: start: 20210604
  3. INFLECTRA [Suspect]
     Active Substance: INFLIXIMAB-DYYB
     Dosage: 500 MG EVERY 8 WEEKS
     Route: 042
     Dates: start: 20210621
  4. INFLECTRA [Suspect]
     Active Substance: INFLIXIMAB-DYYB
     Dosage: 500 MG EVERY 8 WEEKS
     Route: 042
     Dates: start: 20210714
  5. INFLECTRA [Suspect]
     Active Substance: INFLIXIMAB-DYYB
     Dosage: 700 MG, EVERY 8 WEEK
     Route: 042
     Dates: start: 20210812
  6. INFLECTRA [Suspect]
     Active Substance: INFLIXIMAB-DYYB
     Dosage: 500 MG EVERY 8 WEEKS
     Route: 042
     Dates: start: 20210909
  7. INFLECTRA [Suspect]
     Active Substance: INFLIXIMAB-DYYB
     Dosage: 700 MG EVERY 8 WEEKS
     Route: 042
     Dates: start: 20210921
  8. INFLECTRA [Suspect]
     Active Substance: INFLIXIMAB-DYYB
     Dosage: 700 MG EVERY 8 WEEKS
     Route: 042
     Dates: start: 20211104
  9. INFLECTRA [Suspect]
     Active Substance: INFLIXIMAB-DYYB
     Dosage: 700 MG EVERY 8 WEEKS
     Route: 042
     Dates: start: 20211230
  10. INFLECTRA [Suspect]
     Active Substance: INFLIXIMAB-DYYB
     Dosage: 700 MG EVERY 8 WEEKS
     Route: 042
     Dates: start: 20220224
  11. COLESTID [Concomitant]
     Active Substance: COLESTIPOL HYDROCHLORIDE
     Dosage: 4 MG
  12. ENTOCORT [Concomitant]
     Active Substance: BUDESONIDE
     Indication: Crohn^s disease
     Dosage: 9 MG, 1X/DAY
     Route: 048
  13. ENTOCORT [Concomitant]
     Active Substance: BUDESONIDE
     Dosage: 3 MG, DAILY
     Route: 048
     Dates: end: 20211231
  14. ENTOCORT [Concomitant]
     Active Substance: BUDESONIDE
     Dosage: 6 MG
     Dates: end: 20211231
  15. ENTOCORT [Concomitant]
     Active Substance: BUDESONIDE
     Dosage: 2 MG DAILY
  16. IMURAN [Concomitant]
     Active Substance: AZATHIOPRINE
     Dosage: 100 MG, DAILY
     Route: 048

REACTIONS (11)
  - Crohn^s disease [Unknown]
  - Off label use [Unknown]
  - Off label use [Unknown]
  - Intentional product use issue [Unknown]
  - Headache [Recovering/Resolving]
  - Chest discomfort [Recovering/Resolving]
  - Fatigue [Recovered/Resolved]
  - Arthralgia [Unknown]
  - Anal fissure [Unknown]
  - Condition aggravated [Unknown]
  - Feeling abnormal [Unknown]

NARRATIVE: CASE EVENT DATE: 20210604
